FAERS Safety Report 22089860 (Version 1)
Quarter: 2023Q1

REPORT INFORMATION
  Report Type: Spontaneous
  Country: US (occurrence: None)
  Receive Date: 20230311
  Receipt Date: 20230311
  Transmission Date: 20230417
  Serious: Yes (Death)
  Sender: FDA-Public Use
  Company Number: None

PATIENT
  Age: 83 Year
  Sex: Male

DRUGS (1)
  1. OFEV [Suspect]
     Active Substance: NINTEDANIB
     Indication: Idiopathic pulmonary fibrosis
     Dosage: FREQUENCY : TWICE A DAY;?
     Route: 048
     Dates: start: 20170111, end: 20230119

REACTIONS (6)
  - Loss of consciousness [None]
  - Pulse absent [None]
  - Respiratory arrest [None]
  - Asthenia [None]
  - Decreased appetite [None]
  - Cardiac arrest [None]

NARRATIVE: CASE EVENT DATE: 20230119
